FAERS Safety Report 19887960 (Version 1)
Quarter: 2021Q3

REPORT INFORMATION
  Report Type: Spontaneous
  Country: US (occurrence: US)
  Receive Date: 20210924
  Receipt Date: 20210924
  Transmission Date: 20211014
  Serious: Yes (Other)
  Sender: FDA-Public Use
  Company Number: None

PATIENT
  Age: 15 Year
  Sex: Male
  Weight: 54.43 kg

DRUGS (1)
  1. GUANFACINE ER 3MG [Suspect]
     Active Substance: GUANFACINE
     Indication: ATTENTION DEFICIT HYPERACTIVITY DISORDER
     Dosage: OTHER FREQUENCY:QAM;??STOP DATE OF THERAPY: 30?FEB?2018?
     Route: 048
     Dates: start: 20180116

REACTIONS (4)
  - Aggression [None]
  - Impulsive behaviour [None]
  - Psychomotor hyperactivity [None]
  - Irritability [None]

NARRATIVE: CASE EVENT DATE: 20180303
